FAERS Safety Report 7950222-8 (Version None)
Quarter: 2011Q4

REPORT INFORMATION
  Report Type: 
  Country: None (occurrence: None)
  Receive Date: 20111130
  Receipt Date: 20111128
  Transmission Date: 20120403
  Serious: Yes (Death)
  Sender: FDA-Public Use
  Company Number: US-MEDIMMUNE-MEDI-0013839

PATIENT
  Sex: Male

DRUGS (3)
  1. ZANTAC [Concomitant]
  2. LASIX [Concomitant]
     Indication: DIURETIC THERAPY
  3. SYNAGIS [Suspect]
     Dates: start: 20110908, end: 20111015

REACTIONS (1)
  - PULMONARY HYPERTENSION [None]
